FAERS Safety Report 15099410 (Version 4)
Quarter: 2019Q2

REPORT INFORMATION
  Report Type: Spontaneous
  Country: US (occurrence: US)
  Receive Date: 20180702
  Receipt Date: 20190530
  Transmission Date: 20190711
  Serious: Yes (Hospitalization)
  Sender: FDA-Public Use
  Company Number: US-ACTELION-A-NJ2018-174499

PATIENT
  Sex: Female
  Weight: 97.51 kg

DRUGS (3)
  1. AMLODIPINE [Concomitant]
     Active Substance: AMLODIPINE BESYLATE
  2. OPSUMIT [Suspect]
     Active Substance: MACITENTAN
     Indication: PULMONARY HYPERTENSION
     Dosage: UNK
     Route: 048
  3. OPSUMIT [Suspect]
     Active Substance: MACITENTAN
     Dosage: 10 MG, QD
     Route: 048

REACTIONS (6)
  - Scleroderma [Unknown]
  - Biopsy lung [Unknown]
  - Pulmonary hypertension [Unknown]
  - Interstitial lung disease [Unknown]
  - Hypoxia [Unknown]
  - Oedema [Unknown]
